FAERS Safety Report 26101648 (Version 2)
Quarter: 2025Q4

REPORT INFORMATION
  Report Type: Spontaneous
  Country: JP (occurrence: JP)
  Receive Date: 20251128
  Receipt Date: 20251211
  Transmission Date: 20260117
  Serious: Yes (Hospitalization, Other)
  Sender: BRISTOL-MYERS SQUIBB COMPANY
  Company Number: JP-BRISTOL-MYERS SQUIBB COMPANY-2025-147386

PATIENT
  Age: 62 Year
  Sex: Male

DRUGS (4)
  1. OPDIVO [Suspect]
     Active Substance: NIVOLUMAB
     Indication: Hepatocellular carcinoma
     Route: 041
     Dates: start: 20250909, end: 20251021
  2. OPDIVO [Suspect]
     Active Substance: NIVOLUMAB
     Route: 041
     Dates: start: 20251021, end: 20251021
  3. YERVOY [Suspect]
     Active Substance: IPILIMUMAB
     Indication: Hepatocellular carcinoma
     Route: 041
     Dates: start: 20250909, end: 20251021
  4. YERVOY [Suspect]
     Active Substance: IPILIMUMAB
     Route: 041
     Dates: start: 20251021, end: 20251021

REACTIONS (4)
  - Immune-mediated hepatic disorder [Recovered/Resolved]
  - Stevens-Johnson syndrome [Recovered/Resolved]
  - Malignant neoplasm progression [Recovering/Resolving]
  - Tumour pseudoprogression [Unknown]

NARRATIVE: CASE EVENT DATE: 20251014
